FAERS Safety Report 8340954-4 (Version None)
Quarter: 2012Q1

REPORT INFORMATION
  Report Type: 
  Country: None (occurrence: None)
  Receive Date: 20120330
  Receipt Date: 20120124
  Transmission Date: 20120608
  Serious: Yes (Hospitalization)
  Sender: FDA-Public Use
  Company Number: PHEH2012US002113

PATIENT
  Sex: Female

DRUGS (1)
  1. EXELON [Suspect]
     Dosage: SUBCUTANEOUS
     Route: 058

REACTIONS (3)
  - DIZZINESS [None]
  - CONFUSIONAL STATE [None]
  - NAUSEA [None]
